FAERS Safety Report 4317331-6 (Version None)
Quarter: 2004Q1

REPORT INFORMATION
  Report Type: 
  Country: None (occurrence: None)
  Receive Date: 20040312
  Receipt Date: 20040301
  Transmission Date: 20041129
  Serious: Yes (Hospitalization)
  Sender: FDA-Public Use
  Company Number: ES-JNJFOC-20040300672

PATIENT
  Age: 66 Year
  Sex: Female

DRUGS (2)
  1. REMICADE [Suspect]
     Indication: PSORIATIC ARTHROPATHY
     Dosage: 3 MG/KG, INTRAVENOUS
     Route: 042
     Dates: start: 20020118
  2. PREDNISONE [Concomitant]

REACTIONS (1)
  - DIVERTICULUM INTESTINAL [None]
